FAERS Safety Report 5638567-8 (Version None)
Quarter: 2008Q1

REPORT INFORMATION
  Report Type: 
  Country: None (occurrence: None)
  Receive Date: 20080226
  Receipt Date: 20070522
  Transmission Date: 20080703
  Serious: Yes (Disabling)
  Sender: FDA-Public Use
  Company Number: A0649732A

PATIENT
  Age: 48 Year
  Sex: Female

DRUGS (4)
  1. IMITREX [Suspect]
     Indication: CLUSTER HEADACHE
     Dosage: 6MG AS REQUIRED
     Route: 058
     Dates: start: 20070501
  2. VERAPAMIL [Concomitant]
  3. HYOSCYAMINE [Concomitant]
  4. FUROSEMIDE [Concomitant]

REACTIONS (1)
  - PARAESTHESIA [None]
